FAERS Safety Report 5488662-1 (Version None)
Quarter: 2007Q4

REPORT INFORMATION
  Report Type: 
  Country: None (occurrence: None)
  Receive Date: 20071017
  Receipt Date: 20070723
  Transmission Date: 20080405
  Serious: No
  Sender: FDA-Public Use
  Company Number: A0665814A

PATIENT
  Age: 48 Year
  Sex: Female

DRUGS (3)
  1. CEFTIN [Suspect]
     Dosage: 250MG TWICE PER DAY
     Route: 048
     Dates: start: 20070702
  2. NASONEX [Concomitant]
  3. ASMANEX TWISTHALER [Concomitant]

REACTIONS (2)
  - CHILLS [None]
  - DRUG INEFFECTIVE [None]
